FAERS Safety Report 5369967-1 (Version None)
Quarter: 2007Q2

REPORT INFORMATION
  Report Type: 
  Country: None (occurrence: None)
  Receive Date: 20070626
  Receipt Date: 20070614
  Transmission Date: 20071010
  Serious: Yes (Hospitalization)
  Sender: FDA-Public Use
  Company Number: PHRM2007FR01699

PATIENT
  Age: 73 Year
  Sex: Female

DRUGS (2)
  1. LESCOL [Suspect]
     Dosage: 20 MG, QD
     Route: 048
  2. PLAVIX [Concomitant]
     Route: 048

REACTIONS (5)
  - ACCIDENTAL EXPOSURE [None]
  - BLOOD PRESSURE SYSTOLIC DECREASED [None]
  - DYSPEPSIA [None]
  - NAUSEA [None]
  - ORAL DISCOMFORT [None]
